FAERS Safety Report 17649224 (Version 1)
Quarter: 2020Q2

REPORT INFORMATION
  Report Type: Spontaneous
  Country: US (occurrence: US)
  Receive Date: 20200409
  Receipt Date: 20200409
  Transmission Date: 20200713
  Serious: No
  Sender: FDA-Public Use
  Company Number: US-ASTRAZENECA-2020SE39512

PATIENT
  Sex: Female
  Weight: 91.6 kg

DRUGS (11)
  1. LYRICA [Concomitant]
     Active Substance: PREGABALIN
  2. EZETIMIBE. [Concomitant]
     Active Substance: EZETIMIBE
  3. PERCOCET [Concomitant]
     Active Substance: ACETAMINOPHEN\OXYCODONE HYDROCHLORIDE
     Dosage: 5-35 MG BID
  4. BYDUREON BCISE [Suspect]
     Active Substance: EXENATIDE
     Indication: TYPE 2 DIABETES MELLITUS
     Route: 058
  5. ATORVASTATIN [Concomitant]
     Active Substance: ATORVASTATIN
     Dosage: 80MG/DL DAILY
  6. TELMISARTAN. [Concomitant]
     Active Substance: TELMISARTAN
  7. BUSPAR [Concomitant]
     Active Substance: BUSPIRONE HYDROCHLORIDE
  8. NYSTATIN OINTMENT [Concomitant]
     Active Substance: NYSTATIN
     Indication: RASH
  9. JARDIANCE [Concomitant]
     Active Substance: EMPAGLIFLOZIN
  10. METOPROLOL SUCCINATE. [Concomitant]
     Active Substance: METOPROLOL SUCCINATE
     Indication: BLOOD PRESSURE ABNORMAL
  11. CILOSTAZOL. [Concomitant]
     Active Substance: CILOSTAZOL

REACTIONS (2)
  - Incorrect dose administered by device [Unknown]
  - Device issue [Unknown]
